FAERS Safety Report 8520751-7 (Version None)
Quarter: 2012Q3

REPORT INFORMATION
  Report Type: 
  Country: None (occurrence: None)
  Receive Date: 20120719
  Receipt Date: 20120716
  Transmission Date: 20120928
  Serious: Yes (Other)
  Sender: FDA-Public Use
  Company Number: IT-PFIZER INC-2012143322

PATIENT
  Age: 63 Year
  Sex: Female

DRUGS (5)
  1. DOXORUBICIN HCL [Suspect]
     Indication: BREAST CANCER STAGE II
     Dosage: 90 MG, CYCLIC
     Route: 042
     Dates: start: 20120507, end: 20120529
  2. TRIMETON [Concomitant]
     Dosage: 10 MG, UNK
     Route: 042
  3. SOLU-CORTEF [Concomitant]
     Dosage: 250 MG, UNK
     Route: 042
  4. RANITIDINE HCL [Concomitant]
     Dosage: 50 MG, UNK
     Route: 042
  5. ONDANSETRON [Concomitant]
     Dosage: 8 MG, UNK
     Route: 042

REACTIONS (1)
  - HYPERTENSION [None]
